FAERS Safety Report 9849919 (Version 1)
Quarter: 2013Q4

REPORT INFORMATION
  Report Type: Spontaneous
  Country: US (occurrence: None)
  Receive Date: 20131224
  Receipt Date: 20131224
  Transmission Date: 20140711
  Serious: Yes (Hospitalization)
  Sender: FDA-Public Use
  Company Number: 20130098

PATIENT
  Age: 50 Year
  Sex: Female

DRUGS (1)
  1. VENOFER (IRON SUCROSE INJECTION, USP) (2340-10) 20 MG/ML [Suspect]

REACTIONS (1)
  - Confusional state [None]
